FAERS Safety Report 15990610 (Version 2)
Quarter: 2019Q1

REPORT INFORMATION
  Report Type: Report from Study
  Country: JP (occurrence: JP)
  Receive Date: 20190221
  Receipt Date: 20190306
  Transmission Date: 20190418
  Serious: Yes (Death, Hospitalization)
  Sender: FDA-Public Use
  Company Number: JP-PFIZER INC-2018188619

PATIENT
  Age: 73 Year
  Sex: Male
  Weight: 65 kg

DRUGS (15)
  1. MAGNESIUM OXIDE. [Concomitant]
     Active Substance: MAGNESIUM OXIDE
     Indication: CONSTIPATION
     Dosage: 500 MG, AS NEEDED
     Route: 048
     Dates: start: 20180123, end: 20180704
  2. LUBIPROSTONE [Concomitant]
     Active Substance: LUBIPROSTONE
     Indication: CONSTIPATION
     Dosage: 24 UG, 2X/DAY
     Route: 048
     Dates: start: 2016, end: 20180704
  3. LORLATINIB [Suspect]
     Active Substance: LORLATINIB
     Indication: LUNG NEOPLASM MALIGNANT
     Dosage: 100 MG, 1X/DAY (QD)
     Route: 048
     Dates: start: 20180117, end: 20180507
  4. VILDAGLIPTIN [Concomitant]
     Active Substance: VILDAGLIPTIN
     Indication: DIABETES MELLITUS
     Dosage: 100 MG, 2X/DAY
     Route: 048
     Dates: start: 2015, end: 20180704
  5. METFORMIN [Concomitant]
     Active Substance: METFORMIN HYDROCHLORIDE
     Indication: DIABETES MELLITUS
     Dosage: 1500 MG, 3X/DAY
     Route: 048
     Dates: start: 2015, end: 20180704
  6. AMLODIPINE [Concomitant]
     Active Substance: AMLODIPINE BESYLATE
     Indication: HYPERTENSION
     Dosage: 5 MG, 1X/DAY
     Route: 048
     Dates: start: 2007, end: 20180704
  7. BIO-THREE [Concomitant]
     Active Substance: HERBALS
     Indication: CONSTIPATION PROPHYLAXIS
     Dosage: UNK, 3X/DAY
     Route: 048
     Dates: start: 2007, end: 20180704
  8. VALSARTAN. [Concomitant]
     Active Substance: VALSARTAN
     Indication: HYPERLIPIDAEMIA
     Dosage: 80 MG, 2X/DAY
     Route: 048
     Dates: start: 2007, end: 20180704
  9. ROSUVASTATIN. [Concomitant]
     Active Substance: ROSUVASTATIN
     Indication: HYPERLIPIDAEMIA
     Dosage: 15 MG, 1X/DAY
     Route: 048
     Dates: start: 20180131, end: 20180704
  10. CARBOCYSTEINE [Concomitant]
     Active Substance: CARBOCYSTEINE
     Indication: BRONCHITIS
     Dosage: 1500 MG, 3X/DAY
     Route: 048
     Dates: start: 20180228, end: 20180704
  11. ESOMEPRAZOLE. [Concomitant]
     Active Substance: ESOMEPRAZOLE MAGNESIUM
     Indication: GASTRITIS PROPHYLAXIS
     Dosage: 20 MG, 1X/DAY
     Route: 048
     Dates: start: 2007, end: 20180704
  12. FERROUS FUMARATE [Concomitant]
     Active Substance: FERROUS FUMARATE
     Indication: ANAEMIA PROPHYLAXIS
     Dosage: 100 MG, 1X/DAY
     Route: 048
     Dates: start: 20180301, end: 20180704
  13. DOXAZOSIN [Concomitant]
     Active Substance: DOXAZOSIN\DOXAZOSIN MESYLATE
     Indication: HYPERTENSION
     Dosage: 1 MG, 1X/DAY
     Route: 048
     Dates: start: 2007, end: 20180704
  14. DIMEMORFAN [Concomitant]
     Active Substance: DIMEMORFAN
     Indication: COUGH
     Dosage: 10 MG, AS NEEDED
     Route: 048
     Dates: start: 20180131, end: 20180704
  15. GLIMEPIRIDE. [Concomitant]
     Active Substance: GLIMEPIRIDE
     Indication: DIABETES MELLITUS
     Dosage: 1 MG, 1X/DAY
     Route: 048
     Dates: start: 20180301, end: 20180704

REACTIONS (2)
  - Left ventricular dysfunction [Recovering/Resolving]
  - Pneumonitis [Recovering/Resolving]

NARRATIVE: CASE EVENT DATE: 20180507
